FAERS Safety Report 19660561 (Version 2)
Quarter: 2021Q3

REPORT INFORMATION
  Report Type: Other
  Country: CA (occurrence: CA)
  Receive Date: 20210805
  Receipt Date: 20210825
  Transmission Date: 20211014
  Serious: Yes (Other)
  Sender: FDA-Public Use
  Company Number: CA-ROCHE-2881932

PATIENT
  Age: 63 Year
  Sex: Female

DRUGS (1)
  1. OCREVUS [Suspect]
     Active Substance: OCRELIZUMAB
     Indication: PRIMARY PROGRESSIVE MULTIPLE SCLEROSIS
     Dosage: 300 MG AT DAY 0 AND 14, THEN 600 MG EVERY 6 MONTH
     Route: 042
     Dates: start: 20200622

REACTIONS (8)
  - Aspartate aminotransferase increased [Unknown]
  - Lymphocyte count decreased [Unknown]
  - Gamma-glutamyltransferase increased [Unknown]
  - Blood creatine decreased [Unknown]
  - Nitrite urine present [Unknown]
  - White blood cells urine positive [Unknown]
  - Bacterial test positive [Unknown]
  - Granulocyte count increased [Unknown]

NARRATIVE: CASE EVENT DATE: 20210716
